FAERS Safety Report 9669724 (Version 1)
Quarter: 2013Q4

REPORT INFORMATION
  Report Type: Spontaneous
  Country: US (occurrence: None)
  Receive Date: 20131104
  Receipt Date: 20131104
  Transmission Date: 20140711
  Serious: Yes (Hospitalization)
  Sender: FDA-Public Use
  Company Number: None

PATIENT
  Age: 77 Year
  Sex: Male
  Weight: 69.5 kg

DRUGS (16)
  1. XARELTO [Suspect]
     Indication: ATRIAL FIBRILLATION
     Dosage: 1 TABLET, QD, ORAL
     Route: 048
     Dates: start: 20111101
  2. ALBUTEROL [Concomitant]
  3. ATIVAN [Concomitant]
  4. COLCRYS [Concomitant]
  5. DIGOXIN [Concomitant]
  6. FOLIC ACID [Concomitant]
  7. FUROSEMIDE [Concomitant]
  8. LIPITOR [Concomitant]
  9. METOPROLOL SUCCINATE [Concomitant]
  10. POTASSIUM [Concomitant]
  11. REQUIP XL [Concomitant]
  12. SPIRONOLACTONE [Concomitant]
  13. STOOL SOFTENER [Concomitant]
  14. VITAMIN B12 [Concomitant]
  15. VITAMIN B6 [Concomitant]
  16. CENTRUM SILVER [Concomitant]

REACTIONS (7)
  - Contusion [None]
  - Speech disorder [None]
  - Glossodynia [None]
  - Tongue discolouration [None]
  - Swollen tongue [None]
  - Tongue oedema [None]
  - Laryngeal haematoma [None]
